FAERS Safety Report 9675621 (Version 5)
Quarter: 2014Q2

REPORT INFORMATION
  Report Type: Spontaneous
  Country: US (occurrence: None)
  Receive Date: 20131105
  Receipt Date: 20140520
  Transmission Date: 20141212
  Serious: Yes (Hospitalization, Other)
  Sender: FDA-Public Use
  Company Number: 2013-US-002624

PATIENT
  Age: 49 Year
  Sex: Female
  Weight: 88.9 kg

DRUGS (14)
  1. XYREM [Suspect]
     Indication: NARCOLEPSY
     Route: 048
     Dates: start: 200911, end: 200911
  2. XYREM [Suspect]
     Indication: NARCOLEPSY
     Route: 048
     Dates: start: 200911, end: 200911
  3. PROVIGIL (MODAFINIL) [Concomitant]
  4. DEPAKOTE ER (VALPROATE SEMISODIUM) [Concomitant]
  5. LEXAPRO (ESCITALOPRAM OXALATE) [Concomitant]
  6. OMEPRAZOLE (OMEPRAZOLE) [Concomitant]
  7. ADVAIR (FLUTICASONE PROPIONATE, SALMETEROL XINAFOATE) [Concomitant]
  8. ABILIFY (ARIPIPRAZOLE) [Concomitant]
  9. FEXOFENADINE HYDROCHLORIDE (FEXOFENIDINE HYDROCHLORIDE) [Concomitant]
  10. NASONEX (MOMETASONE FUROATE) [Concomitant]
  11. AMERGE (NARATRIPTAN HYDROCHLORIDE) [Concomitant]
  12. NAPROXEN SODIUM (NAPROXEN SODIUM) [Concomitant]
  13. ALBUTEROL SULFATE (SALBUTAMOL SULFATE) [Concomitant]
  14. SEROQUEL (QUETIAPINE FUMARATE) [Concomitant]

REACTIONS (12)
  - Syncope [None]
  - Hemiparesis [None]
  - Intervertebral disc disorder [None]
  - Syncope [None]
  - Transient ischaemic attack [None]
  - Neuralgia [None]
  - Road traffic accident [None]
  - Intervertebral disc protrusion [None]
  - Nerve compression [None]
  - Spinal fusion surgery [None]
  - Intervertebral disc protrusion [None]
  - Procedural pain [None]
